FAERS Safety Report 9664542 (Version 5)
Quarter: 2013Q4

REPORT INFORMATION
  Report Type: Report from Study
  Country: BR (occurrence: BR)
  Receive Date: 20131101
  Receipt Date: 20131209
  Transmission Date: 20140711
  Serious: Yes (Hospitalization, Other)
  Sender: FDA-Public Use
  Company Number: PHHY2013BR120933

PATIENT
  Age: 50 Year
  Sex: Male
  Weight: 150 kg

DRUGS (5)
  1. DIOVAN [Suspect]
     Indication: HYPERTENSION
     Dosage: 1 DF (160 MG), DAILY
     Route: 048
     Dates: start: 2009
  2. HYDROCHLOROTHIAZIDE [Suspect]
     Indication: CARDIOVASCULAR DISORDER
     Dosage: 1 DF (25 MG), DAILY
     Dates: start: 2009
  3. ATENOLOL [Suspect]
     Indication: CARDIOVASCULAR DISORDER
     Dosage: 1 DF (50 MG), DAILY
     Dates: start: 2009
  4. ALLOPURINOL [Suspect]
     Indication: CARDIOVASCULAR DISORDER
     Dosage: 1 DF (100 MG), DAILY
     Dates: start: 2009
  5. SIMVASTATIN [Concomitant]
     Indication: BLOOD CHOLESTEROL ABNORMAL
     Dosage: 2 DF (50MG), DAILY
     Route: 048

REACTIONS (14)
  - Asphyxia [Recovering/Resolving]
  - Dyspnoea [Recovering/Resolving]
  - Vomiting [Recovered/Resolved]
  - Abdominal pain upper [Recovered/Resolved]
  - Nausea [Recovered/Resolved]
  - Sinusitis [Not Recovered/Not Resolved]
  - Rhinitis [Not Recovered/Not Resolved]
  - Influenza like illness [Not Recovered/Not Resolved]
  - Fear [Recovering/Resolving]
  - Local swelling [Recovered/Resolved]
  - Insomnia [Not Recovered/Not Resolved]
  - Fatigue [Not Recovered/Not Resolved]
  - Asthenia [Not Recovered/Not Resolved]
  - Abdominal pain [Not Recovered/Not Resolved]
